FAERS Safety Report 21038453 (Version 1)
Quarter: 2022Q3

REPORT INFORMATION
  Report Type: Spontaneous
  Country: US (occurrence: US)
  Receive Date: 20220704
  Receipt Date: 20220704
  Transmission Date: 20221026
  Serious: No
  Sender: FDA-Public Use
  Company Number: US-AMGEN-USASP2022112115

PATIENT
  Age: 66 Year
  Sex: Female

DRUGS (5)
  1. OTEZLA [Suspect]
     Active Substance: APREMILAST
     Indication: Psoriasis
     Dosage: 20 MILLIGRAM, BID
     Route: 048
     Dates: start: 20220622
  2. PROLENSA [Concomitant]
     Active Substance: BROMFENAC SODIUM
     Indication: Cataract operation
     Dosage: UNK
     Dates: start: 20220616
  3. PREDNISOLONE [Concomitant]
     Active Substance: PREDNISOLONE
     Indication: Cataract operation
     Dosage: UNK
     Dates: start: 20220616
  4. MOXIFLOXACIN [Concomitant]
     Active Substance: MOXIFLOXACIN
     Indication: Cataract operation
     Dosage: UNK
     Dates: start: 20220616
  5. TALTZ [Concomitant]
     Active Substance: IXEKIZUMAB
     Dosage: UNK
     Route: 065
     Dates: end: 20220628

REACTIONS (2)
  - Chromaturia [Not Recovered/Not Resolved]
  - Off label use [Unknown]

NARRATIVE: CASE EVENT DATE: 20220601
